FAERS Safety Report 9459026 (Version 1)
Quarter: 2013Q3

REPORT INFORMATION
  Report Type: Spontaneous
  Country: IT (occurrence: IT)
  Receive Date: 20130814
  Receipt Date: 20130814
  Transmission Date: 20140515
  Serious: Yes (Hospitalization, Other)
  Sender: FDA-Public Use
  Company Number: IT-PFIZER INC-2013231631

PATIENT
  Age: 77 Year
  Sex: Female

DRUGS (5)
  1. CELECOXIB [Suspect]
     Indication: GOUT
     Dosage: 200 MG, 2X/DAY
  2. DIGOXIN [Concomitant]
  3. FUROSEMIDE [Concomitant]
  4. PROPAFENONE [Concomitant]
  5. WARFARIN [Concomitant]

REACTIONS (1)
  - Hepatorenal syndrome [Recovered/Resolved]
